FAERS Safety Report 8179651-7 (Version None)
Quarter: 2012Q1

REPORT INFORMATION
  Report Type: 
  Country: None (occurrence: None)
  Receive Date: 20120302
  Receipt Date: 20120224
  Transmission Date: 20120608
  Serious: Yes (Death, Life-Threatening, Other)
  Sender: FDA-Public Use
  Company Number: JP-CELGENEUS-087-50794-12011876

PATIENT
  Sex: Female

DRUGS (41)
  1. KYTRIL [Concomitant]
     Route: 065
     Dates: start: 20111019, end: 20111025
  2. ZOSYN [Concomitant]
     Route: 065
     Dates: start: 20111227, end: 20120107
  3. EPOGIN [Concomitant]
     Route: 050
     Dates: start: 20120111, end: 20120111
  4. AMLODIPINE BESYLATE [Concomitant]
     Route: 065
     Dates: end: 20111227
  5. ASPIRIN [Concomitant]
     Route: 065
     Dates: end: 20120111
  6. SEDEKOPAN [Concomitant]
     Route: 065
     Dates: end: 20120111
  7. ALBUMIN TANNATE [Concomitant]
     Route: 065
     Dates: start: 20111102, end: 20111104
  8. CEFEPIME DIHYDROCHLORIDE HYDRATE [Concomitant]
     Route: 065
     Dates: start: 20111210, end: 20111222
  9. VANCOMYCIN HYDROCHLORIDE [Concomitant]
     Route: 065
     Dates: start: 20120104, end: 20120104
  10. CEFOCEF [Concomitant]
     Route: 065
     Dates: start: 20111226, end: 20111227
  11. EPOGIN [Concomitant]
     Route: 050
     Dates: start: 20120105, end: 20120105
  12. KYTRIL [Concomitant]
     Route: 065
     Dates: start: 20111220, end: 20111226
  13. LANSOPRAZOLE [Concomitant]
     Route: 065
     Dates: start: 20111030, end: 20120111
  14. MAXIPIME [Concomitant]
     Route: 065
     Dates: start: 20111207, end: 20111209
  15. VANCOMYCIN HYDROCHLORIDE [Concomitant]
     Route: 065
     Dates: start: 20111228, end: 20111228
  16. VANCOMYCIN HYDROCHLORIDE [Concomitant]
     Route: 065
     Dates: start: 20111231, end: 20111231
  17. TEICOPLANIN [Concomitant]
     Route: 065
     Dates: start: 20120105, end: 20120107
  18. NONTHRON [Concomitant]
     Route: 065
     Dates: start: 20120105
  19. CARVEDILOL [Concomitant]
     Route: 065
     Dates: end: 20111227
  20. LIPITOR [Concomitant]
     Route: 065
     Dates: end: 20111029
  21. SELBEX [Concomitant]
     Route: 065
     Dates: end: 20120111
  22. FLUCONAZON [Concomitant]
     Route: 065
     Dates: start: 20111019, end: 20111226
  23. KYTRIL [Concomitant]
     Route: 065
     Dates: start: 20111118, end: 20111124
  24. SENNARIDE [Concomitant]
     Route: 065
     Dates: start: 20111022
  25. VANCOMYCIN HYDROCHLORIDE [Concomitant]
     Route: 065
     Dates: start: 20111226, end: 20111226
  26. TEICOPLANIN [Concomitant]
     Route: 065
     Dates: start: 20120108, end: 20120110
  27. LASIX [Concomitant]
     Route: 065
     Dates: start: 20120105, end: 20120105
  28. LASIX [Concomitant]
     Route: 065
     Dates: start: 20120112, end: 20120112
  29. ARGAMATE [Concomitant]
     Route: 065
     Dates: start: 20111218, end: 20111220
  30. VIDAZA [Suspect]
     Dosage: 100 MILLIGRAM
     Route: 058
     Dates: start: 20111220, end: 20111226
  31. GAMOFA [Concomitant]
     Route: 065
  32. MAGMITT [Concomitant]
     Route: 065
     Dates: start: 20111030, end: 20111226
  33. VIDAZA [Suspect]
     Indication: MYELODYSPLASTIC SYNDROME
     Route: 065
     Dates: start: 20111019, end: 20111025
  34. VIDAZA [Suspect]
     Route: 065
     Dates: start: 20111118, end: 20111124
  35. TANATRIL [Concomitant]
     Route: 065
     Dates: end: 20111227
  36. CILOSTAZOL [Concomitant]
     Route: 065
     Dates: end: 20120111
  37. COTRIM [Concomitant]
     Route: 065
     Dates: start: 20111019
  38. ALLOPURINOL [Concomitant]
     Route: 065
     Dates: start: 20111019, end: 20111027
  39. CEFEPIME DIHYDROCHLORIDE HYDRATE [Concomitant]
     Route: 065
     Dates: start: 20111224, end: 20111225
  40. PENTAZOCINE LACTATE [Concomitant]
     Route: 065
     Dates: start: 20120103, end: 20120103
  41. LASIX [Concomitant]
     Route: 065
     Dates: start: 20120110, end: 20120110

REACTIONS (25)
  - SHOCK [None]
  - INFLAMMATION [None]
  - HYPONATRAEMIA [None]
  - PROTEINURIA [None]
  - HYPERCHLORAEMIA [None]
  - BLOOD POTASSIUM INCREASED [None]
  - BLOOD URINE PRESENT [None]
  - DEHYDRATION [None]
  - FEMUR FRACTURE [None]
  - WHITE BLOOD CELL COUNT DECREASED [None]
  - FEBRILE NEUTROPENIA [None]
  - FALL [None]
  - SEPSIS [None]
  - NEUTROPHIL COUNT DECREASED [None]
  - ENTEROCOCCAL SEPSIS [None]
  - DIARRHOEA [None]
  - RENAL FAILURE ACUTE [None]
  - SEPTIC SHOCK [None]
  - GENERAL PHYSICAL HEALTH DETERIORATION [None]
  - HYPERURICAEMIA [None]
  - THROMBOCYTOPENIA [None]
  - ANAEMIA [None]
  - HYPOCALCAEMIA [None]
  - HYPERPHOSPHATAEMIA [None]
  - HYPOKALAEMIA [None]
